FAERS Safety Report 10152976 (Version 1)
Quarter: 2014Q2

REPORT INFORMATION
  Report Type: Spontaneous
  Country: US (occurrence: US)
  Receive Date: 20140505
  Receipt Date: 20140505
  Transmission Date: 20141212
  Serious: No
  Sender: FDA-Public Use
  Company Number: US-TEVA-479471USA

PATIENT
  Age: 32 Year
  Sex: Female
  Weight: 63.11 kg

DRUGS (3)
  1. PARAGARD 380A [Suspect]
     Indication: CONTRACEPTION
     Route: 015
     Dates: start: 200406
  2. MULTIVITAMIN [Concomitant]
     Indication: VITAMIN SUPPLEMENTATION
  3. ZYRTEC [Concomitant]
     Indication: MULTIPLE ALLERGIES

REACTIONS (6)
  - Lymphadenopathy [Unknown]
  - Tenderness [Unknown]
  - Uterine spasm [Recovered/Resolved]
  - Menorrhagia [Not Recovered/Not Resolved]
  - Discomfort [Recovered/Resolved]
  - Amenorrhoea [Recovered/Resolved]
